FAERS Safety Report 17794702 (Version 1)
Quarter: 2020Q2

REPORT INFORMATION
  Report Type: Report from Study
  Country: CA (occurrence: CA)
  Receive Date: 20200515
  Receipt Date: 20200515
  Transmission Date: 20200714
  Serious: Yes (Hospitalization)
  Sender: FDA-Public Use
  Company Number: CA-ACTELION-A-US2020-205109

PATIENT
  Sex: Female

DRUGS (12)
  1. VITAMIN D NOS [Concomitant]
     Active Substance: VITAMIN D NOS
  2. ACTONEL [Concomitant]
     Active Substance: RISEDRONATE SODIUM
  3. RISEDRONATE [Concomitant]
     Active Substance: RISEDRONATE SODIUM
  4. MAGNESIUM [Concomitant]
     Active Substance: MAGNESIUM
  5. MIDODRINE [Concomitant]
     Active Substance: MIDODRINE
  6. PREDNISONE. [Concomitant]
     Active Substance: PREDNISONE
  7. CALCIUM CARBONATE. [Concomitant]
     Active Substance: CALCIUM CARBONATE
  8. CALCIUM [Concomitant]
     Active Substance: CALCIUM
  9. OMEPRAZOLE. [Concomitant]
     Active Substance: OMEPRAZOLE
  10. URSODIOL. [Concomitant]
     Active Substance: URSODIOL
  11. OPSUMIT [Suspect]
     Active Substance: MACITENTAN
     Indication: PULMONARY ARTERIAL HYPERTENSION
     Dosage: 10 MG, QD
     Route: 048
     Dates: start: 20200403
  12. FUROSEMIDE. [Concomitant]
     Active Substance: FUROSEMIDE

REACTIONS (1)
  - Hospitalisation [Unknown]
